FAERS Safety Report 20015556 (Version 1)
Quarter: 2021Q4

REPORT INFORMATION
  Report Type: Spontaneous
  Country: US (occurrence: None)
  Receive Date: 20211029
  Receipt Date: 20211029
  Transmission Date: 20220303
  Serious: No
  Sender: FDA-Public Use
  Company Number: None

PATIENT
  Age: 73 Year
  Sex: Male
  Weight: 107.95 kg

DRUGS (1)
  1. PRIVIGEN [Suspect]
     Active Substance: HUMAN IMMUNOGLOBULIN G

REACTIONS (6)
  - Arthralgia [None]
  - Pain in extremity [None]
  - Pain in extremity [None]
  - Pain in extremity [None]
  - Peripheral swelling [None]
  - Arthralgia [None]

NARRATIVE: CASE EVENT DATE: 20211018
